FAERS Safety Report 19672243 (Version 1)
Quarter: 2021Q3

REPORT INFORMATION
  Report Type: Spontaneous
  Country: JP (occurrence: JP)
  Receive Date: 20210808
  Receipt Date: 20210808
  Transmission Date: 20211014
  Serious: Yes (Other)
  Sender: FDA-Public Use
  Company Number: JP-AMGEN-JPNSP2021117544

PATIENT

DRUGS (3)
  1. ROMOSOZUMAB [Suspect]
     Active Substance: ROMOSOZUMAB
     Indication: OSTEOPOROSIS
     Dosage: UNK
     Route: 065
  2. ETELCALCETIDE [Suspect]
     Active Substance: ETELCALCETIDE
     Indication: PRODUCT USED FOR UNKNOWN INDICATION
     Route: 065
  3. CINACALCET HCL [Suspect]
     Active Substance: CINACALCET HYDROCHLORIDE
     Indication: PRODUCT USED FOR UNKNOWN INDICATION
     Route: 065

REACTIONS (17)
  - Arrhythmia [Unknown]
  - Plasma cell myeloma [Unknown]
  - Cardiac valve disease [Unknown]
  - Breast cancer [Unknown]
  - Interstitial lung disease [Unknown]
  - Sepsis [Unknown]
  - Colon cancer [Unknown]
  - Peripheral arterial occlusive disease [Unknown]
  - Fracture [Unknown]
  - Epilepsy [Unknown]
  - Adverse event [Unknown]
  - Coronary artery stenosis [Unknown]
  - Hypocalcaemia [Unknown]
  - Atrial fibrillation [Unknown]
  - Feeling abnormal [Unknown]
  - Arteriovenous fistula occlusion [Unknown]
  - Pathological fracture [Unknown]
